FAERS Safety Report 12499036 (Version 1)
Quarter: 2016Q2

REPORT INFORMATION
  Report Type: Spontaneous
  Country: None (occurrence: None)
  Receive Date: 20160624
  Receipt Date: 20160624
  Transmission Date: 20160815
  Serious: Yes (Other)
  Sender: FDA-Public Use
  Company Number: None

PATIENT
  Age: 64 Year
  Sex: Female
  Weight: 58.97 kg

DRUGS (1)
  1. BUPRENORPHINE, 8 MG ROXANE BOREHRINGER INGELHEIM [Suspect]
     Active Substance: BUPRENORPHINE
     Indication: PAIN
     Dosage: 30 TABLET(S) IN THE MORNING TAKEN UNDER THE TONGUE
     Route: 060
     Dates: start: 20160602, end: 20160616

REACTIONS (3)
  - Abdominal pain [None]
  - Seizure [None]
  - Cognitive disorder [None]

NARRATIVE: CASE EVENT DATE: 20160602
